FAERS Safety Report 4889930-4 (Version None)
Quarter: 2006Q1

REPORT INFORMATION
  Report Type: 
  Country: None (occurrence: None)
  Receive Date: 20060123
  Receipt Date: 20060123
  Transmission Date: 20060701
  Serious: Yes (Other)
  Sender: FDA-Public Use
  Company Number: None

PATIENT
  Sex: Female
  Weight: 58.9676 kg

DRUGS (7)
  1. LYRICA [Suspect]
     Indication: NEUROPATHY
     Dosage: 75 MG 1 X DAY PO
     Route: 048
     Dates: start: 20060119, end: 20060120
  2. GABAPENTIN [Concomitant]
  3. TRILEPTAL [Concomitant]
  4. AMITRIPTYLINE HCL [Concomitant]
  5. RANITIDINE [Concomitant]
  6. NIFEDIPINE [Concomitant]
  7. AMBIEN [Concomitant]

REACTIONS (5)
  - CONDITION AGGRAVATED [None]
  - NEUROPATHY [None]
  - PARADOXICAL DRUG REACTION [None]
  - PARAESTHESIA [None]
  - VASOSPASM [None]
